FAERS Safety Report 21778232 (Version 1)
Quarter: 2022Q4

REPORT INFORMATION
  Report Type: Spontaneous
  Country: JP (occurrence: JP)
  Receive Date: 20221226
  Receipt Date: 20221226
  Transmission Date: 20230113
  Serious: Yes (Hospitalization, Other)
  Sender: FDA-Public Use
  Company Number: JP-GLAXOSMITHKLINE-JP2022JPN189891

PATIENT

DRUGS (2)
  1. FLOLAN [Suspect]
     Active Substance: EPOPROSTENOL SODIUM
     Indication: Heritable pulmonary arterial hypertension
     Dosage: UNK
     Route: 042
  2. FLOLAN [Suspect]
     Active Substance: EPOPROSTENOL SODIUM
     Dosage: UNK,INCREASED
     Route: 042

REACTIONS (10)
  - Immunoglobulin G4 related disease [Recovering/Resolving]
  - Swelling of eyelid [Recovering/Resolving]
  - Lacrimal gland enlargement [Unknown]
  - Submaxillary gland enlargement [Unknown]
  - Salivary gland enlargement [Unknown]
  - Pancreatic enlargement [Unknown]
  - Bronchial artery hypertrophy [Unknown]
  - Lung opacity [Unknown]
  - Dyspnoea exertional [Unknown]
  - Pulmonary arterial pressure increased [Unknown]
